FAERS Safety Report 5855030-X (Version None)
Quarter: 2008Q3

REPORT INFORMATION
  Report Type: 
  Country: None (occurrence: None)
  Receive Date: 20080822
  Receipt Date: 20080512
  Transmission Date: 20090109
  Serious: No
  Sender: FDA-Public Use
  Company Number: US-ABBOTT-08P-163-0451451-00

PATIENT
  Age: 66 Year
  Sex: Male
  Weight: 88.53 kg

DRUGS (6)
  1. SYNTHROID [Suspect]
     Indication: HYPOTHYROIDISM
     Route: 048
     Dates: end: 20080501
  2. SYNTHROID [Suspect]
     Route: 048
     Dates: start: 20080501
  3. ACEBUTOLOL [Concomitant]
     Indication: CARDIAC DISORDER
     Route: 048
  4. WARFARIN SODIUM [Concomitant]
     Indication: ARRHYTHMIA PROPHYLAXIS
     Route: 048
  5. CLONAZEPAM [Concomitant]
     Indication: ANXIETY
     Route: 048
  6. AMBIEN CR [Concomitant]
     Indication: INSOMNIA
     Route: 048

REACTIONS (1)
  - BLOOD THYROID STIMULATING HORMONE INCREASED [None]
